FAERS Safety Report 10881245 (Version 1)
Quarter: 2015Q1

REPORT INFORMATION
  Report Type: Spontaneous
  Country: US (occurrence: US)
  Receive Date: 20150303
  Receipt Date: 20150303
  Transmission Date: 20150721
  Serious: No
  Sender: FDA-Public Use
  Company Number: US-PFIZER INC-2015072551

PATIENT
  Age: 18 Year
  Sex: Male
  Weight: 133 kg

DRUGS (1)
  1. ADVIL [Suspect]
     Active Substance: IBUPROFEN
     Indication: HEADACHE
     Dosage: 1 DF, 1X/DAY
     Dates: start: 2013, end: 201502

REACTIONS (2)
  - Drug ineffective [Unknown]
  - Headache [Unknown]
